FAERS Safety Report 24660567 (Version 1)
Quarter: 2024Q4

REPORT INFORMATION
  Report Type: Spontaneous
  Country: US (occurrence: US)
  Receive Date: 20241125
  Receipt Date: 20241125
  Transmission Date: 20250115
  Serious: Yes (Other)
  Sender: ASTELLAS
  Company Number: US-ASTELLAS-2024-AER-019231

PATIENT
  Age: 74 Year
  Sex: Male

DRUGS (1)
  1. TACROLIMUS [Suspect]
     Active Substance: TACROLIMUS
     Indication: Renal transplant
     Route: 065

REACTIONS (6)
  - Urinary tract infection [Unknown]
  - Staphylococcal bacteraemia [Unknown]
  - Post infection glomerulonephritis [Unknown]
  - Acute kidney injury [Unknown]
  - Septic shock [Unknown]
  - Endocarditis [Unknown]
